FAERS Safety Report 10377553 (Version 1)
Quarter: 2014Q1

REPORT INFORMATION
  Report Type: Spontaneous
  Country: US (occurrence: None)
  Receive Date: 20140306
  Receipt Date: 20140306
  Transmission Date: 20141002
  Serious: Yes (Other)
  Sender: FDA-Public Use
  Company Number: 163-21880-13031988

PATIENT
  Age: 59 Year
  Sex: Female
  Weight: 59.6 kg

DRUGS (15)
  1. REVLIMID (LENALIDOMIDE) (25 MILLIGRAM, CAPSULES) [Suspect]
     Indication: PLASMA CELL MYELOMA
     Route: 048
     Dates: start: 201005
  2. CYCLOPHOSPHAMIDE (CYCLOPHOSPHAMIDE) (UNKNOWN) (CYCLOPHOSAPHAMIDE) [Concomitant]
  3. BORTEZOMIB (BORTEZOMIB) (UNKNOWN) [Concomitant]
  4. FAMOTIDINE (FAMOTIDINE) (UNKNOWN) [Concomitant]
  5. ONDANSETRON (ONDANSETRON) (UNKNOWN) [Concomitant]
  6. ACYCLOVIR (ACICLOVIR) (UNKNOWN) [Concomitant]
  7. POTASSIUM (POTASSIUM) (UNKNOWN) [Concomitant]
  8. DEXAMETHASONE (DEXAMETHASONE) (UNKNOWN) [Concomitant]
  9. TRAMADOL (TRAMADOL) (UNKNOWN) [Concomitant]
  10. CALCIUM (CALCIUM) (UNKNOWN) [Concomitant]
  11. VELCADE (BORTEZOMIB) (UNKNOWN) [Concomitant]
  12. CYTOXAN (CYCLOPHOSPHAMIDE) (UNKNOWN) [Concomitant]
  13. ZOFRAN (ONDANSETRON HYDROCHLORIDE) (UNKNOWN) [Concomitant]
  14. PEPCID (FAMOTIDINE) (UNKNOWN) [Concomitant]
  15. ASPIRIN (ACETYLSALICYLIC ACID) (UNKNOWN) (ACETYLSALICYLIC ACID) [Concomitant]

REACTIONS (1)
  - Thrombocytopenia [None]
